FAERS Safety Report 21746471 (Version 2)
Quarter: 2022Q4

REPORT INFORMATION
  Report Type: Report from Study
  Country: US (occurrence: US)
  Receive Date: 20221219
  Receipt Date: 20221220
  Transmission Date: 20230113
  Serious: No
  Sender: FDA-Public Use
  Company Number: US-ABBVIE-4226410

PATIENT
  Sex: Female
  Weight: 82 kg

DRUGS (1)
  1. HUMIRA [Suspect]
     Active Substance: ADALIMUMAB
     Indication: Hidradenitis
     Route: 058
     Dates: start: 202105

REACTIONS (6)
  - Infection [Not Recovered/Not Resolved]
  - Hidradenitis [Unknown]
  - Nasopharyngitis [Unknown]
  - Wound drainage [Not Recovered/Not Resolved]
  - COVID-19 [Unknown]
  - Dysmenorrhoea [Unknown]

NARRATIVE: CASE EVENT DATE: 20220101
